FAERS Safety Report 8264365-5 (Version None)
Quarter: 2012Q2

REPORT INFORMATION
  Report Type: 
  Country: None (occurrence: None)
  Receive Date: 20120406
  Receipt Date: 20120329
  Transmission Date: 20120825
  Serious: Yes (Hospitalization)
  Sender: FDA-Public Use
  Company Number: CA-JNJFOC-20120314936

PATIENT
  Sex: Female
  Weight: 109.8 kg

DRUGS (3)
  1. REMICADE [Suspect]
     Indication: CROHN'S DISEASE
     Route: 042
     Dates: start: 20030401
  2. FOLIC ACID [Concomitant]
     Route: 065
  3. ZANTAC [Concomitant]
     Route: 065

REACTIONS (1)
  - DEVICE OCCLUSION [None]
